FAERS Safety Report 8096369-X (Version None)
Quarter: 2012Q1

REPORT INFORMATION
  Report Type: 
  Country: None (occurrence: None)
  Receive Date: 20120126
  Receipt Date: 20120116
  Transmission Date: 20120608
  Serious: Yes (Hospitalization)
  Sender: FDA-Public Use
  Company Number: TCI2011A05431

PATIENT
  Age: 82 Year
  Sex: Male

DRUGS (10)
  1. METGLUCO (METFORMIN HYDROCHLORIDE) [Concomitant]
  2. ASPIRIN [Concomitant]
  3. FAMOTIDINE [Concomitant]
  4. ACTOS [Suspect]
     Indication: DIABETES MELLITUS
     Route: 048
     Dates: end: 20110801
  5. ALINAMIN F (PROSULTIAMINE) [Concomitant]
  6. LANTUS [Concomitant]
  7. PERSELIN (ALLYLESTRENOL) [Concomitant]
  8. CRESTOR [Concomitant]
  9. HUMALOG [Concomitant]
  10. TAMSULOSIN HYDROCHLORIDE [Concomitant]

REACTIONS (2)
  - BLADDER CANCER STAGE 0, WITH CANCER IN SITU [None]
  - HAEMATURIA [None]
